FAERS Safety Report 13306263 (Version 1)
Quarter: 2017Q1

REPORT INFORMATION
  Report Type: Spontaneous
  Country: US (occurrence: US)
  Receive Date: 20170308
  Receipt Date: 20170308
  Transmission Date: 20170428
  Serious: Yes (Other)
  Sender: FDA-Public Use
  Company Number: US-PFIZER INC-2017090882

PATIENT
  Sex: Female

DRUGS (1)
  1. POTASSIUM CHLORIDE. [Suspect]
     Active Substance: POTASSIUM CHLORIDE
     Dosage: UNK
     Route: 042
     Dates: start: 20170220

REACTIONS (4)
  - Erythema [Unknown]
  - Pain [Unknown]
  - Cellulitis [Unknown]
  - Swelling [Unknown]

NARRATIVE: CASE EVENT DATE: 201702
